FAERS Safety Report 4647836-X (Version None)
Quarter: 2005Q2

REPORT INFORMATION
  Report Type: 
  Country: None (occurrence: None)
  Receive Date: 20050428
  Receipt Date: 20041203
  Transmission Date: 20051028
  Serious: Yes (Other)
  Sender: FDA-Public Use
  Company Number: GB-GLAXOSMITHKLINE-B0360823A

PATIENT
  Sex: Female

DRUGS (3)
  1. PAROXETINE HYDROCHLORIDE [Suspect]
     Route: 065
     Dates: start: 19980101
  2. PAROXETINE HYDROCHLORIDE [Suspect]
     Dosage: 24MG PER DAY
     Route: 065
  3. CITALOPRAM HYDROBROMIDE [Concomitant]
     Dates: start: 19991201

REACTIONS (5)
  - DEPRESSION [None]
  - FEELING ABNORMAL [None]
  - ILL-DEFINED DISORDER [None]
  - MALAISE [None]
  - SUICIDAL IDEATION [None]
